FAERS Safety Report 8925547 (Version 1)
Quarter: 2012Q4

REPORT INFORMATION
  Report Type: 
  Country: US (occurrence: US)
  Receive Date: 20121126
  Receipt Date: 20121126
  Transmission Date: 20130627
  Serious: Yes (Other)
  Sender: FDA-Public Use
  Company Number: US-BAYER-2012-120036

PATIENT
  Age: 31 Year
  Sex: Female

DRUGS (3)
  1. YASMIN [Suspect]
     Route: 048
  2. CLARITIN [Concomitant]
  3. ALBUTEROL [Concomitant]

REACTIONS (2)
  - Thrombosis [None]
  - Thrombophlebitis superficial [None]
